FAERS Safety Report 4595276-4 (Version None)
Quarter: 2005Q1

REPORT INFORMATION
  Report Type: 
  Country: None (occurrence: None)
  Receive Date: 20050225
  Receipt Date: 20050110
  Transmission Date: 20050727
  Serious: Yes (Other)
  Sender: FDA-Public Use
  Company Number: 2005002315

PATIENT
  Sex: Female
  Weight: 82.5547 kg

DRUGS (9)
  1. CELEBREX [Suspect]
     Indication: OSTEOARTHRITIS
     Dosage: 400 MG (200 MG, 2 IN 1 D), ORAL    4 YEARS AGO
     Route: 048
  2. ETODOLAC [Suspect]
     Indication: OSTEOARTHRITIS
     Dosage: 800 MG (200 MG, 2 IN 1 D), ORAL
     Route: 048
     Dates: start: 20050101
  3. TRAMADOL HCL [Concomitant]
  4. MECLOZINE (MECLOZINE) [Concomitant]
  5. PROVELLA-14 (ESTROGENS CONJUGATED, MEDROXYPROGESTERONE ACETATE) [Concomitant]
  6. PRAMIPEXOLE (PRAMIPEXOLE) [Concomitant]
  7. ANTIHYPERTENSIVES (ANTIHYPERTENSIVES) [Concomitant]
  8. ASPIRIN [Concomitant]
  9. VITAMINS (VITAMINS) [Concomitant]

REACTIONS (9)
  - ARTHRITIS [None]
  - BLOOD PRESSURE ABNORMAL [None]
  - CONDITION AGGRAVATED [None]
  - CORONARY ARTERY OCCLUSION [None]
  - DIZZINESS [None]
  - DRUG EFFECT DECREASED [None]
  - MYOCARDIAL INFARCTION [None]
  - NEOPLASM MALIGNANT [None]
  - VERTIGO [None]
